FAERS Safety Report 18203135 (Version 8)
Quarter: 2020Q4

REPORT INFORMATION
  Report Type: Spontaneous
  Country: US (occurrence: US)
  Receive Date: 20200827
  Receipt Date: 20201104
  Transmission Date: 20210113
  Serious: Yes (Other)
  Sender: FDA-Public Use
  Company Number: US-GLAXOSMITHKLINE-US2020167524

PATIENT
  Sex: Female
  Weight: 61 kg

DRUGS (4)
  1. ZEJULA [Suspect]
     Active Substance: NIRAPARIB
     Dosage: 100 MG, QD
     Dates: start: 20200731
  2. ZEJULA [Suspect]
     Active Substance: NIRAPARIB
     Indication: OVARIAN CANCER
     Dosage: UNK
     Dates: start: 20181128
  3. ZEJULA [Suspect]
     Active Substance: NIRAPARIB
     Dosage: 100 MG, QD
  4. ZEJULA [Suspect]
     Active Substance: NIRAPARIB
     Dosage: 100 MG, QD
     Route: 048

REACTIONS (8)
  - Sinusitis [Recovering/Resolving]
  - Herpes zoster [Recovering/Resolving]
  - Constipation [Not Recovered/Not Resolved]
  - Haemorrhoidal haemorrhage [Unknown]
  - Rectal haemorrhage [Unknown]
  - Rash [Recovering/Resolving]
  - Dyspepsia [Unknown]
  - Anxiety [Unknown]
